FAERS Safety Report 8176908-0 (Version None)
Quarter: 2012Q1

REPORT INFORMATION
  Report Type: 
  Country: None (occurrence: None)
  Receive Date: 20120124
  Receipt Date: 20101230
  Transmission Date: 20120608
  Serious: Yes (Hospitalization)
  Sender: FDA-Public Use
  Company Number: WAES 1012USA04392

PATIENT
  Age: 89 Year
  Sex: Male

DRUGS (1)
  1. INVANZ [Suspect]
     Indication: INFECTION PROPHYLAXIS
     Dosage: 1.0 GM/DAILY/IV
     Route: 042

REACTIONS (1)
  - RENAL FAILURE [None]
